FAERS Safety Report 4602505-7 (Version None)
Quarter: 2005Q1

REPORT INFORMATION
  Report Type: 
  Country: None (occurrence: None)
  Receive Date: 20050307
  Receipt Date: 20050224
  Transmission Date: 20050727
  Serious: Yes (Other)
  Sender: FDA-Public Use
  Company Number: 2004103610

PATIENT
  Age: 58 Year
  Sex: Female
  Weight: 124.2856 kg

DRUGS (2)
  1. CELEBREX [Suspect]
     Indication: MYALGIA
     Dosage: 400 MG (200 MG, 2 IN 1 D), ORAL
     Route: 048
  2. NORVASC [Suspect]
     Indication: PULMONARY HYPERTENSION
     Dosage: 10 MG, 1 IN 1 D, ORAL
     Route: 048
     Dates: start: 20010101

REACTIONS (10)
  - AUTOIMMUNE DISORDER [None]
  - CHRONIC OBSTRUCTIVE PULMONARY DISEASE [None]
  - CONNECTIVE TISSUE DISORDER [None]
  - DISEASE PROGRESSION [None]
  - DRUG EFFECT DECREASED [None]
  - DRUG INTOLERANCE [None]
  - INTERSTITIAL LUNG DISEASE [None]
  - OBLITERATIVE BRONCHIOLITIS [None]
  - PULMONARY HYPERTENSION [None]
  - SLEEP APNOEA SYNDROME [None]
